FAERS Safety Report 8510491-2 (Version None)
Quarter: 2012Q3

REPORT INFORMATION
  Report Type: 
  Country: None (occurrence: None)
  Receive Date: 20120716
  Receipt Date: 20120706
  Transmission Date: 20120928
  Serious: Yes (Death, Other)
  Sender: FDA-Public Use
  Company Number: BR-AMGEN-BRASP2012042699

PATIENT
  Age: 37 Year
  Sex: Female

DRUGS (1)
  1. CINACALCET HYDROCHLORIDE [Suspect]
     Indication: PRODUCT USED FOR UNKNOWN INDICATION
     Dosage: UNK
     Route: 048
     Dates: start: 20120404

REACTIONS (6)
  - RENAL DISORDER [None]
  - BLISTER [None]
  - FEELING ABNORMAL [None]
  - BENIGN NEOPLASM [None]
  - DEATH [None]
  - CARDIAC DISORDER [None]
